FAERS Safety Report 14258758 (Version 2)
Quarter: 2017Q4

REPORT INFORMATION
  Report Type: Report from Study
  Country: US (occurrence: US)
  Receive Date: 20171207
  Receipt Date: 20171220
  Transmission Date: 20180321
  Serious: Yes (Hospitalization, Other)
  Sender: FDA-Public Use
  Company Number: US-GILEAD-2017-0308827

PATIENT
  Age: 56 Year
  Sex: Female

DRUGS (1)
  1. AMBRISENTAN [Suspect]
     Active Substance: AMBRISENTAN
     Indication: PRODUCT USED FOR UNKNOWN INDICATION
     Dosage: 5 MG, UNK
     Route: 065
     Dates: start: 20170210

REACTIONS (5)
  - Respiratory failure [Unknown]
  - Unevaluable event [Unknown]
  - Malaise [Not Recovered/Not Resolved]
  - Endotracheal intubation [Unknown]
  - Pulmonary arterial hypertension [Unknown]
